FAERS Safety Report 7044250-7 (Version None)
Quarter: 2010Q4

REPORT INFORMATION
  Report Type: 
  Country: None (occurrence: None)
  Receive Date: 20101014
  Receipt Date: 20101004
  Transmission Date: 20110411
  Serious: No
  Sender: FDA-Public Use
  Company Number: US-BIOGENIDEC-2010BI015763

PATIENT
  Sex: Female
  Weight: 49 kg

DRUGS (3)
  1. TYSABRI [Suspect]
     Indication: MULTIPLE SCLEROSIS
     Route: 042
     Dates: start: 20071219
  2. VICODIN [Concomitant]
     Indication: BACK PAIN
  3. VICODIN [Concomitant]
     Indication: MIGRAINE

REACTIONS (8)
  - ALOPECIA [None]
  - DECREASED IMMUNE RESPONSIVENESS [None]
  - FOLLICULITIS [None]
  - INFECTIOUS MONONUCLEOSIS [None]
  - MAJOR DEPRESSION [None]
  - RASH [None]
  - SKIN REACTION [None]
  - WHITE BLOOD CELL COUNT INCREASED [None]
